FAERS Safety Report 5103656-3 (Version None)
Quarter: 2006Q3

REPORT INFORMATION
  Report Type: 
  Country: None (occurrence: None)
  Receive Date: 20060913
  Receipt Date: 20060829
  Transmission Date: 20061208
  Serious: Yes (Hospitalization, Disabling, Other)
  Sender: FDA-Public Use
  Company Number: PHBS2006CH13106

PATIENT
  Age: 71 Year
  Sex: Male

DRUGS (9)
  1. ZOMETA [Suspect]
     Indication: METASTASES TO BONE
     Dosage: 4 MG, ONCE/SINGLE
     Route: 042
     Dates: start: 20060401, end: 20060401
  2. ZOMETA [Suspect]
     Dosage: 4 MG, ONCE/SINGLE
     Route: 042
     Dates: start: 20060501, end: 20060501
  3. ADALAT SL - SLOW RELEASE [Concomitant]
     Indication: HYPERTENSION
     Dosage: 90 MG/D
  4. TORSEMIDE [Concomitant]
     Indication: RENAL FAILURE
     Dosage: 200 MG/D
     Route: 042
  5. BELOC ZOK [Concomitant]
     Indication: HYPERTENSION
     Dosage: 50 MG/D
  6. NEXIUM [Concomitant]
     Dosage: 40 MG/D
  7. CALCIMAGON-D3 [Concomitant]
     Dosage: 3 DF/D
  8. DIPIPERON [Concomitant]
     Dosage: 40 MG/DAY
  9. CIPROFLAXACIN [Concomitant]

REACTIONS (20)
  - ALBUMINURIA [None]
  - ANURIA [None]
  - BLOOD CREATININE INCREASED [None]
  - BLOOD SODIUM DECREASED [None]
  - CALCIUM IONISED DECREASED [None]
  - CATHETER RELATED INFECTION [None]
  - DIARRHOEA [None]
  - GENERAL PHYSICAL HEALTH DETERIORATION [None]
  - HAEMODIALYSIS [None]
  - HYPERKALAEMIA [None]
  - HYPOCALCAEMIA [None]
  - PROTEINURIA [None]
  - RENAL ARTERIOSCLEROSIS [None]
  - RENAL FAILURE ACUTE [None]
  - RENAL FAILURE CHRONIC [None]
  - RENAL TUBULAR NECROSIS [None]
  - SUBCLAVIAN VEIN THROMBOSIS [None]
  - THROMBOTIC MICROANGIOPATHY [None]
  - VITAMIN D DEFICIENCY [None]
  - VOMITING [None]
